FAERS Safety Report 10441084 (Version 2)
Quarter: 2014Q3

REPORT INFORMATION
  Report Type: Spontaneous
  Country: BR (occurrence: BR)
  Receive Date: 20140909
  Receipt Date: 20140930
  Transmission Date: 20150326
  Serious: Yes (Hospitalization)
  Sender: FDA-Public Use
  Company Number: BR-ASTRAZENECA-2014SE66052

PATIENT
  Sex: Male

DRUGS (15)
  1. KOMBYGLYZE [Suspect]
     Active Substance: METFORMIN HYDROCHLORIDE\SAXAGLIPTIN HYDROCHLORIDE
     Indication: DIABETES MELLITUS
     Dosage: 2.5/100 MG, TWO TIMES A DAY
     Route: 048
  2. TECTA [Concomitant]
     Active Substance: PANTOPRAZOLE MAGNESIUM
     Route: 048
  3. LORAX [Concomitant]
     Active Substance: LORAZEPAM
     Route: 048
  4. INSULIN [Concomitant]
     Active Substance: INSULIN NOS
     Indication: DIABETES MELLITUS
     Dosage: 6UI
     Route: 058
     Dates: end: 201407
  5. BRILINTA [Suspect]
     Active Substance: TICAGRELOR
     Indication: VENOUS OCCLUSION
     Route: 048
     Dates: start: 20140714, end: 20140714
  6. ASA [Suspect]
     Active Substance: ASPIRIN
     Route: 048
  7. DIAMICRON MR [Concomitant]
     Active Substance: GLICLAZIDE
     Indication: DIABETES MELLITUS
     Route: 048
     Dates: start: 201407
  8. BRILINTA [Suspect]
     Active Substance: TICAGRELOR
     Indication: VENOUS OCCLUSION
     Route: 048
     Dates: start: 20140715
  9. JANUVIA [Concomitant]
     Active Substance: SITAGLIPTIN PHOSPHATE
     Indication: DIABETES MELLITUS
     Route: 048
     Dates: end: 201407
  10. FORXIGA [Suspect]
     Active Substance: DAPAGLIFLOZIN
     Indication: DIABETES MELLITUS
     Route: 048
  11. CRESTOR [Suspect]
     Active Substance: ROSUVASTATIN CALCIUM
     Indication: BLOOD CHOLESTEROL ABNORMAL
     Route: 048
     Dates: start: 2004
  12. GLIFAGE [Suspect]
     Active Substance: METFORMIN HYDROCHLORIDE
     Indication: DIABETES MELLITUS
     Route: 048
     Dates: end: 201407
  13. MATERNA [Concomitant]
     Indication: VITAMIN SUPPLEMENTATION
     Route: 048
  14. DONAREN [Concomitant]
     Active Substance: TRAZODONE HYDROCHLORIDE
     Route: 048
  15. GLIMEPIRIDE. [Concomitant]
     Active Substance: GLIMEPIRIDE
     Indication: DIABETES MELLITUS
     Route: 048
     Dates: end: 201407

REACTIONS (4)
  - Venous occlusion [Recovered/Resolved]
  - Erythema [Not Recovered/Not Resolved]
  - Epistaxis [Recovered/Resolved]
  - Off label use [Not Recovered/Not Resolved]

NARRATIVE: CASE EVENT DATE: 201407
